FAERS Safety Report 8886199 (Version 2)
Quarter: 2012Q4

REPORT INFORMATION
  Report Type: 
  Country: US (occurrence: US)
  Receive Date: 20121105
  Receipt Date: 20121115
  Transmission Date: 20130627
  Serious: Yes (Hospitalization)
  Sender: FDA-Public Use
  Company Number: US-ASTRAZENECA-2012SE82924

PATIENT
  Age: 76 Year
  Sex: Female

DRUGS (2)
  1. NEXIUM [Suspect]
     Route: 048
  2. NEXIUM [Suspect]
     Route: 048

REACTIONS (8)
  - Gastrointestinal disorder [Unknown]
  - Gastritis [Unknown]
  - Malaise [Unknown]
  - Gastritis [Unknown]
  - Hiatus hernia [Unknown]
  - Diverticulitis [Unknown]
  - Hypoaesthesia [Unknown]
  - Intentional drug misuse [Unknown]
